FAERS Safety Report 18324480 (Version 1)
Quarter: 2020Q3

REPORT INFORMATION
  Report Type: Spontaneous
  Country: US (occurrence: US)
  Receive Date: 20200929
  Receipt Date: 20200929
  Transmission Date: 20201103
  Serious: Yes (Hospitalization)
  Sender: FDA-Public Use
  Company Number: None

PATIENT
  Sex: Male

DRUGS (5)
  1. GABAPENTIN CAP 300MG [Concomitant]
     Active Substance: GABAPENTIN
     Dates: start: 20200904
  2. OCTREOTIDE. [Suspect]
     Active Substance: OCTREOTIDE
     Indication: NEOPLASM MALIGNANT
     Route: 058
     Dates: start: 20200602
  3. LISINOPRIL TAB 20MG [Concomitant]
     Active Substance: LISINOPRIL
     Dates: start: 20200723
  4. PREDNISONE TAB 5MG [Concomitant]
     Active Substance: PREDNISONE
     Dates: start: 20200612
  5. FOLIC ACID TAB 1MG [Concomitant]
     Dates: start: 20200611

REACTIONS (1)
  - Gastric haemorrhage [None]
